FAERS Safety Report 9916468 (Version 1)
Quarter: 2014Q1

REPORT INFORMATION
  Report Type: Spontaneous
  Country: FR (occurrence: None)
  Receive Date: 20140219
  Receipt Date: 20140219
  Transmission Date: 20141002
  Serious: Yes (Hospitalization)
  Sender: FDA-Public Use
  Company Number: 2181228

PATIENT
  Age: 66 Year
  Sex: Female

DRUGS (11)
  1. CARBOPLATIN [Suspect]
     Indication: CERVIX CARCINOMA
     Dosage: UNKNOWN, CYCLICAL, INTREAVENOUS (NOT OTHERWISE SPECIFIED)?
     Route: 042
     Dates: start: 20121214, end: 20130503
  2. CISPLATIN [Suspect]
     Indication: CERVIX CARCINOMA
     Dosage: 50 MG/M 2 MILLIGRAM (S) /SQ. METER, 1 CYCLICAL, INTRAVENOUS (NOT OTHERWISE SPECIFIED)?
     Route: 042
     Dates: start: 20110916, end: 20120102
  3. HYCAMTIN [Suspect]
     Indication: CERVIX CARCINOMA
     Dosage: .75 MG/M 2 MILLIGRAM (S) /SQ. METER (1 CYCLICAL), INTRAVENOUS (NOT OTHERWISE SPECIFIED)
     Route: 042
     Dates: start: 20110916, end: 20120104
  4. PACLITAXEL [Suspect]
     Indication: CERVIX CARCINOMA
     Dosage: 80 MG/M 2 MILLIGRAM (S) /SQ. METER (1 CYCLICAL), INTRAVENOUS (NOT OTHERWISE SPECIFIED)?
     Route: 042
     Dates: start: 20121214
  5. SKENAN [Concomitant]
  6. ACTISKENAN [Concomitant]
  7. JAMYLENE [Concomitant]
  8. AMLOR [Concomitant]
  9. FORLAX [Concomitant]
  10. SOLUPRED [Concomitant]
  11. THERAPEUTIC RADIOPHARMACEUTICALS [Concomitant]

REACTIONS (4)
  - Myelodysplastic syndrome [None]
  - Renal failure acute [None]
  - Bicytopenia [None]
  - Haematotoxicity [None]
